FAERS Safety Report 8175095-2 (Version None)
Quarter: 2012Q1

REPORT INFORMATION
  Report Type: 
  Country: None (occurrence: None)
  Receive Date: 20120227
  Receipt Date: 20120215
  Transmission Date: 20120608
  Serious: Yes (Hospitalization)
  Sender: FDA-Public Use
  Company Number: 2011SP053215

PATIENT
  Age: 59 Year
  Sex: Male
  Weight: 56 kg

DRUGS (12)
  1. TERCIAN [Concomitant]
  2. TROSPIUM CHLORIDE [Concomitant]
  3. EFFEXOR [Concomitant]
  4. ISENTRESS [Concomitant]
  5. OMEXEL [Concomitant]
  6. VIRAFERONPEG [Suspect]
     Indication: HEPATITIS C
     Dosage: 80 MCG; QW
     Dates: start: 20110825
  7. REBETOL [Suspect]
     Indication: HEPATITIS C
     Dosage: 800 MG; QD
     Dates: start: 20110825
  8. TRUVADA [Concomitant]
  9. BOCEPREVIR (SCH-503034) [Suspect]
     Indication: HEPATITIS C
     Dosage: 800 MG; TID
     Dates: start: 20110927
  10. ASPIRIN [Concomitant]
  11. ATENOLOL [Concomitant]
  12. CRESTOR [Concomitant]

REACTIONS (13)
  - HEPATITIS C [None]
  - WEIGHT DECREASED [None]
  - FATIGUE [None]
  - URINARY TRACT INFECTION [None]
  - WHITE BLOOD CELL COUNT INCREASED [None]
  - HYPOTENSION [None]
  - HAEMOGLOBIN DECREASED [None]
  - URINARY INCONTINENCE [None]
  - DECREASED APPETITE [None]
  - ASTHENIA [None]
  - PROTEUS TEST POSITIVE [None]
  - GAIT DISTURBANCE [None]
  - MUSCULAR WEAKNESS [None]
